FAERS Safety Report 4497608-4 (Version None)
Quarter: 2004Q4

REPORT INFORMATION
  Report Type: 
  Country: None (occurrence: None)
  Receive Date: 20041105
  Receipt Date: 20041022
  Transmission Date: 20050328
  Serious: Yes (Death)
  Sender: FDA-Public Use
  Company Number: US-JNJFOC-20040500752

PATIENT
  Age: 56 Year
  Sex: Male

DRUGS (10)
  1. REMINYL [Suspect]
     Indication: DEMENTIA
     Route: 049
  2. PEPCID [Concomitant]
  3. ATIVAN [Concomitant]
  4. DILANTIN [Concomitant]
     Indication: CONVULSION PROPHYLAXIS
  5. RISPERIDONE [Concomitant]
  6. MIRALAX [Concomitant]
  7. LORTAB [Concomitant]
  8. LORTAB [Concomitant]
  9. TYLENOL [Concomitant]
  10. NYSTATIN [Concomitant]

REACTIONS (11)
  - AGGRESSION [None]
  - AGITATION [None]
  - CANDIDIASIS [None]
  - CEREBROVASCULAR ACCIDENT [None]
  - COGNITIVE DISORDER [None]
  - DEMENTIA [None]
  - FALL [None]
  - HIP FRACTURE [None]
  - METABOLIC ENCEPHALOPATHY [None]
  - SUBDURAL HAEMATOMA [None]
  - TREATMENT NONCOMPLIANCE [None]
